FAERS Safety Report 8764098 (Version 1)
Quarter: 2012Q4

REPORT INFORMATION
  Report Type: 
  Country: JP (occurrence: JP)
  Receive Date: 20120831
  Receipt Date: 20120831
  Transmission Date: 20130627
  Serious: Yes (Hospitalization)
  Sender: FDA-Public Use
  Company Number: JP-NOVOPROD-358654

PATIENT
  Age: 68 Year
  Sex: Female

DRUGS (3)
  1. VICTOZA HIKACHU INJECTION [Suspect]
     Indication: TYPE 2 DIABETES MELLITUS
     Dosage: UNK
     Route: 058
     Dates: start: 2010
  2. LIRAGLUTIDE HIKACHU INJECTION [Suspect]
     Dosage: 0.6 mg, qd
     Route: 058
  3. VICTOZA [Suspect]
     Dosage: 0.9 mg, qd
     Route: 058

REACTIONS (2)
  - Enterocolitis [Unknown]
  - Adverse drug reaction [Unknown]
